FAERS Safety Report 16149048 (Version 1)
Quarter: 2019Q2

REPORT INFORMATION
  Report Type: Report from Study
  Country: US (occurrence: US)
  Receive Date: 20190402
  Receipt Date: 20190402
  Transmission Date: 20190711
  Serious: Yes (Other)
  Sender: FDA-Public Use
  Company Number: US-RETROPHIN, INC.-2019RTN00009

PATIENT
  Age: 8 Year
  Sex: Female
  Weight: 23.86 kg

DRUGS (6)
  1. ZANTAC [Suspect]
     Active Substance: RANITIDINE HYDROCHLORIDE
     Indication: ABDOMINAL PAIN
     Dosage: UNK
     Dates: start: 20190315
  2. FLUOXETINE [Concomitant]
     Active Substance: FLUOXETINE HYDROCHLORIDE
  3. MELATONIN [Concomitant]
     Active Substance: MELATONIN
  4. CHOLIC ACID [Suspect]
     Active Substance: CHOLIC ACID
     Indication: INBORN ERROR IN PRIMARY BILE ACID SYNTHESIS
     Dosage: 250 MG, 1X/DAY
     Route: 048
     Dates: start: 20190208, end: 20190318
  5. CHOLBAM [Suspect]
     Active Substance: CHOLIC ACID
     Indication: INBORN ERROR IN PRIMARY BILE ACID SYNTHESIS
     Dosage: 100 MG, 1X/DAY
     Route: 048
     Dates: start: 20190208, end: 20190318
  6. IRON [Concomitant]
     Active Substance: IRON

REACTIONS (11)
  - Body temperature decreased [Unknown]
  - Abdominal pain [Unknown]
  - Chest pain [Unknown]
  - Psychomotor hyperactivity [Unknown]
  - Abnormal behaviour [Unknown]
  - Vomiting [Unknown]
  - Oesophageal disorder [Unknown]
  - Diarrhoea [Unknown]
  - Swollen tongue [Unknown]
  - Drooling [Unknown]
  - Coagulation test abnormal [Unknown]

NARRATIVE: CASE EVENT DATE: 201902
